FAERS Safety Report 13358246 (Version 1)
Quarter: 2017Q1

REPORT INFORMATION
  Report Type: Report from Study
  Country: DE (occurrence: DE)
  Receive Date: 20170322
  Receipt Date: 20170322
  Transmission Date: 20170429
  Serious: Yes (Hospitalization)
  Sender: FDA-Public Use
  Company Number: DE-EMD SERONO-220015N09DEU

PATIENT
  Age: 6 Year
  Sex: Male
  Weight: 25 kg

DRUGS (5)
  1. SAIZEN [Suspect]
     Active Substance: SOMATROPIN
     Indication: GROWTH RETARDATION
     Dosage: 0.4 (UNSPECIFIED UNIT)
     Route: 058
     Dates: start: 20080226, end: 20081208
  2. EUTHYROX [Concomitant]
     Active Substance: LEVOTHYROXINE SODIUM
     Indication: BLOOD THYROID STIMULATING HORMONE DECREASED
     Dates: start: 20061106
  3. ORFIRIL [Concomitant]
     Active Substance: VALPROIC ACID
     Indication: EPILEPSY
     Dates: start: 20080226
  4. HYDROCORTISONE. [Concomitant]
     Active Substance: HYDROCORTISONE
     Indication: BLOOD CORTICOTROPHIN DECREASED
     Dates: start: 20081204
  5. SAIZEN [Suspect]
     Active Substance: SOMATROPIN
     Dosage: 0.6 (UNSPECIFIED UNIT)
     Route: 058
     Dates: start: 20081209, end: 20090407

REACTIONS (2)
  - Cystic lymphangioma [Unknown]
  - Neoplasm progression [Unknown]

NARRATIVE: CASE EVENT DATE: 200903
